FAERS Safety Report 23491418 (Version 1)
Quarter: 2024Q1

REPORT INFORMATION
  Report Type: Spontaneous
  Country: US (occurrence: None)
  Receive Date: 20240207
  Receipt Date: 20240207
  Transmission Date: 20240409
  Serious: No
  Sender: FDA-Public Use
  Company Number: US-ROCHE-3440340

PATIENT
  Sex: Male

DRUGS (2)
  1. NUTROPIN AQ [Suspect]
     Active Substance: SOMATROPIN
     Indication: Product used for unknown indication
     Dosage: NUTROPIN AQ NUSPIN 20MG/2ML, 2.2MG
     Route: 058
  2. NUTROPIN AQ [Suspect]
     Active Substance: SOMATROPIN

REACTIONS (2)
  - Wrong technique in device usage process [Unknown]
  - No adverse event [Unknown]
